FAERS Safety Report 21547323 (Version 1)
Quarter: 2022Q4

REPORT INFORMATION
  Report Type: Spontaneous
  Country: US (occurrence: US)
  Receive Date: 20221103
  Receipt Date: 20221103
  Transmission Date: 20230112
  Serious: No
  Sender: FDA-Public Use
  Company Number: US-TORRENT-00012066

PATIENT
  Sex: Male

DRUGS (1)
  1. ARIPIPRAZOLE [Suspect]
     Active Substance: ARIPIPRAZOLE
     Indication: Bipolar disorder
     Dosage: 1 TABLET PER DAY
     Route: 065
     Dates: start: 20221014

REACTIONS (5)
  - Vision blurred [Recovered/Resolved]
  - Fatigue [Unknown]
  - Malaise [Unknown]
  - Vomiting [Unknown]
  - Head discomfort [Unknown]

NARRATIVE: CASE EVENT DATE: 20221001
